FAERS Safety Report 23787535 (Version 3)
Quarter: 2024Q2

REPORT INFORMATION
  Report Type: Spontaneous
  Country: PT (occurrence: PT)
  Receive Date: 20240426
  Receipt Date: 20240523
  Transmission Date: 20240715
  Serious: Yes (Other)
  Sender: FDA-Public Use
  Company Number: PT-002147023-NVSC2024PT084074

PATIENT
  Age: 70 Year
  Sex: Male
  Weight: 95 kg

DRUGS (9)
  1. OCTREOTIDE [Suspect]
     Active Substance: OCTREOTIDE\OCTREOTIDE ACETATE
     Indication: Neuroendocrine tumour
     Dosage: 30 MG (28/28 DAYS)
     Route: 065
     Dates: start: 201810
  2. OCTREOTIDE [Suspect]
     Active Substance: OCTREOTIDE\OCTREOTIDE ACETATE
     Dosage: 60 MG (28/28 DAYS)
     Route: 065
     Dates: start: 202210
  3. OCTREOTIDE [Suspect]
     Active Substance: OCTREOTIDE\OCTREOTIDE ACETATE
  4. LUTATHERA [Suspect]
     Active Substance: LUTETIUM OXODOTREOTIDE LU-177
     Indication: Neuroendocrine tumour
     Dosage: UNK
     Route: 065
     Dates: start: 20230713
  5. LUTATHERA [Suspect]
     Active Substance: LUTETIUM OXODOTREOTIDE LU-177
     Dosage: 6064.3 MBQ ((163.9 MCI) (EVERY 8 WEEKS, TOTALIZING 4 ADMINISTRATIONS)
     Route: 042
  6. TROMALYT [Concomitant]
     Active Substance: ASPIRIN
     Indication: Product used for unknown indication
     Dosage: UNK, QD
     Route: 065
  7. ZANITEK [Concomitant]
     Indication: Product used for unknown indication
     Dosage: UNK, QD (20/10)
     Route: 065
  8. SIMVASTATIN [Concomitant]
     Active Substance: SIMVASTATIN
     Indication: Product used for unknown indication
     Dosage: 20 MG
     Route: 065
  9. TAMSULOSIN [Concomitant]
     Active Substance: TAMSULOSIN
     Indication: Product used for unknown indication
     Dosage: 0.4 MG, QD
     Route: 065

REACTIONS (18)
  - Pulmonary mass [Unknown]
  - Lung opacity [Unknown]
  - Hepatic lesion [Unknown]
  - Aortic valve incompetence [Unknown]
  - Metastases to liver [Unknown]
  - Bradycardia [Unknown]
  - Aortic dilatation [Unknown]
  - Neuroendocrine tumour [Unknown]
  - Malignant neoplasm progression [Unknown]
  - Metastases to pancreas [Unknown]
  - Small intestine carcinoma [Unknown]
  - Metastases to lymph nodes [Unknown]
  - Dilatation atrial [Unknown]
  - Fatigue [Recovered/Resolved]
  - Hot flush [Not Recovered/Not Resolved]
  - Nausea [Recovered/Resolved]
  - Therapy partial responder [Unknown]
  - Off label use [Unknown]

NARRATIVE: CASE EVENT DATE: 20210301
